FAERS Safety Report 17250860 (Version 1)
Quarter: 2020Q1

REPORT INFORMATION
  Report Type: Spontaneous
  Country: US (occurrence: US)
  Receive Date: 20200109
  Receipt Date: 20200109
  Transmission Date: 20200409
  Serious: No
  Sender: FDA-Public Use
  Company Number: US-AUROBINDO-AUR-APL-2018-059052

PATIENT

DRUGS (1)
  1. OXYCODONE HYDROCHLORIDE TABLETS USP 5 MG [Suspect]
     Active Substance: OXYCODONE HYDROCHLORIDE
     Indication: ANALGESIC THERAPY
     Route: 065

REACTIONS (6)
  - Product quality issue [Unknown]
  - Headache [Unknown]
  - Product substitution issue [Unknown]
  - Drug ineffective [Unknown]
  - Gout [Unknown]
  - Abdominal discomfort [Unknown]
